FAERS Safety Report 18089356 (Version 2)
Quarter: 2020Q3

REPORT INFORMATION
  Report Type: Spontaneous
  Country: CN (occurrence: CN)
  Receive Date: 20200729
  Receipt Date: 20200806
  Transmission Date: 20201103
  Serious: Yes (Other)
  Sender: FDA-Public Use
  Company Number: CN-ELI_LILLY_AND_COMPANY-CN202007002553

PATIENT
  Age: 53 Year
  Sex: Male

DRUGS (1)
  1. TALTZ [Suspect]
     Active Substance: IXEKIZUMAB
     Indication: PSORIASIS
     Dosage: 80 MG, UNKNOWN
     Route: 058
     Dates: start: 20200211, end: 202006

REACTIONS (3)
  - Parotitis [Not Recovered/Not Resolved]
  - Cyst [Not Recovered/Not Resolved]
  - Parotid gland enlargement [Not Recovered/Not Resolved]

NARRATIVE: CASE EVENT DATE: 20200616
